FAERS Safety Report 4879385-8 (Version None)
Quarter: 2006Q1

REPORT INFORMATION
  Report Type: 
  Country: None (occurrence: None)
  Receive Date: 20060112
  Receipt Date: 20051017
  Transmission Date: 20060701
  Serious: Yes (Hospitalization, Other)
  Sender: FDA-Public Use
  Company Number: US-MERCK-0510USA07674

PATIENT
  Age: 81 Year
  Sex: Female
  Weight: 66 kg

DRUGS (21)
  1. VIOXX [Suspect]
     Indication: KNEE ARTHROPLASTY
     Route: 048
     Dates: start: 19991101, end: 20030701
  2. VIOXX [Suspect]
     Indication: PAIN
     Route: 048
     Dates: start: 19991101, end: 20030701
  3. ZITHROMAX [Concomitant]
     Route: 065
  4. DURATUSS [Concomitant]
     Route: 065
  5. MECLIZINE [Concomitant]
     Route: 065
  6. HYDROCODONE BITARTRATE [Concomitant]
     Route: 065
     Dates: start: 20010901, end: 20011001
  7. ALLEGRA [Concomitant]
     Route: 065
  8. BIAXIN [Concomitant]
     Route: 065
  9. PROTONIX [Concomitant]
     Route: 065
  10. ATENOLOL [Concomitant]
     Route: 065
     Dates: start: 20010101
  11. PHENAZOPYRIDINE HYDROCHLORIDE [Concomitant]
     Route: 065
  12. AMOXICILLIN [Concomitant]
     Route: 065
  13. TEQUIN [Concomitant]
     Route: 065
  14. PROMETHAZINE [Concomitant]
     Route: 065
  15. PRILOSEC [Concomitant]
     Route: 065
  16. DIPROLENE [Concomitant]
     Route: 065
  17. LODINE [Concomitant]
     Route: 065
     Dates: start: 20010901, end: 20011001
  18. GUAIFENESIN [Concomitant]
     Route: 065
  19. CELEBREX [Concomitant]
     Route: 065
  20. ACETAMINOPHEN [Concomitant]
     Route: 065
  21. HYDROCHLOROTHIAZIDE [Concomitant]
     Route: 065
     Dates: start: 20030101

REACTIONS (4)
  - BLINDNESS [None]
  - CEREBROVASCULAR ACCIDENT [None]
  - HYPERTENSION [None]
  - OCULAR VASCULAR DISORDER [None]
